FAERS Safety Report 21858551 (Version 1)
Quarter: 2023Q1

REPORT INFORMATION
  Report Type: Report from Study
  Country: US (occurrence: US)
  Receive Date: 20230113
  Receipt Date: 20230113
  Transmission Date: 20230417
  Serious: No
  Sender: FDA-Public Use
  Company Number: US-ABBVIE-4236522

PATIENT
  Sex: Female

DRUGS (1)
  1. HUMIRA [Suspect]
     Active Substance: ADALIMUMAB
     Indication: Psoriasis
     Dosage: CF, ONSET FOR VAGINAL BACTERIAL INFECTION, MOUTH SORES AND CRACKED LIPS WAS 2022
     Route: 058
     Dates: start: 20221122

REACTIONS (3)
  - Chapped lips [Not Recovered/Not Resolved]
  - Bacterial vulvovaginitis [Not Recovered/Not Resolved]
  - Stomatitis [Not Recovered/Not Resolved]
